FAERS Safety Report 6314236-6 (Version None)
Quarter: 2009Q3

REPORT INFORMATION
  Report Type: 
  Country: None (occurrence: None)
  Receive Date: 20090817
  Receipt Date: 20090807
  Transmission Date: 20100115
  Serious: Yes (Other)
  Sender: FDA-Public Use
  Company Number: GXBR2009US01646

PATIENT
  Sex: Female

DRUGS (1)
  1. METHAZOLAMIDE [Suspect]

REACTIONS (5)
  - CEREBROVASCULAR ACCIDENT [None]
  - CHEST PAIN [None]
  - CHOKING [None]
  - HEADACHE [None]
  - OEDEMA PERIPHERAL [None]
